FAERS Safety Report 14419120 (Version 1)
Quarter: 2018Q1

REPORT INFORMATION
  Report Type: Report from Study
  Country: DE (occurrence: DE)
  Receive Date: 20180122
  Receipt Date: 20180122
  Transmission Date: 20180509
  Serious: Yes (Hospitalization, Other)
  Sender: FDA-Public Use
  Company Number: US-ASTRAZENECA-2018SE01497

PATIENT
  Age: 181 Day
  Sex: Male
  Weight: 1.8 kg

DRUGS (8)
  1. SYNAGIS [Suspect]
     Active Substance: PALIVIZUMAB
     Indication: PREMATURE BABY
     Dosage: 100.0MG UNKNOWN
     Route: 030
     Dates: start: 20180105
  2. INFANRIX HEXA [Concomitant]
     Active Substance: DIPHTHERIA AND TETANUS TOXOIDS AND ACELLULAR PERTUSSIS ADSORBED, INACTIVATED POLIOVIRUS AND HAEMOPHILUS B CONJUGATE AND HEPATITIS B VIRUS VACCINE
     Indication: PRODUCT USED FOR UNKNOWN INDICATION
     Dates: start: 20171019, end: 20171019
  3. SYNAGIS [Suspect]
     Active Substance: PALIVIZUMAB
     Indication: HEART DISEASE CONGENITAL
     Dosage: 100.0MG UNKNOWN
     Route: 030
     Dates: start: 20180105
  4. D-FLUORETTEN [Concomitant]
     Indication: PROPHYLAXIS
  5. SYNAGIS [Suspect]
     Active Substance: PALIVIZUMAB
     Indication: PREMATURE BABY
     Dosage: 100.0MG UNKNOWN
     Route: 030
     Dates: start: 20171025, end: 20171206
  6. MENINGOCOCCAL VACCINATION [Concomitant]
     Indication: PRODUCT USED FOR UNKNOWN INDICATION
     Dates: start: 20171208, end: 20171208
  7. SYNAGIS [Suspect]
     Active Substance: PALIVIZUMAB
     Indication: HEART DISEASE CONGENITAL
     Dosage: 100.0MG UNKNOWN
     Route: 030
     Dates: start: 20171025, end: 20171206
  8. FERROUS GLYCINE SULFATE [Concomitant]
     Active Substance: FERROUS GLYCINE SULFATE
     Indication: PROPHYLAXIS

REACTIONS (3)
  - Overdose [Unknown]
  - Hospitalisation [Recovering/Resolving]
  - Respiratory syncytial virus infection [Recovered/Resolved]

NARRATIVE: CASE EVENT DATE: 20171025
